FAERS Safety Report 4519784-7 (Version None)
Quarter: 2004Q4

REPORT INFORMATION
  Report Type: 
  Country: None (occurrence: None)
  Receive Date: 20041201
  Receipt Date: 20041201
  Transmission Date: 20050328
  Serious: Yes (Other)
  Sender: FDA-Public Use
  Company Number: None

PATIENT
  Age: 42 Year
  Sex: Female
  Weight: 82 kg

DRUGS (1)
  1. ATAZANAVIR 400 MG PO DAILY [Suspect]
     Indication: HIV INFECTION
     Dosage: 400 MG PO
     Route: 048
     Dates: end: 20040901

REACTIONS (1)
  - BLOOD BILIRUBIN INCREASED [None]
